FAERS Safety Report 8456339-6 (Version None)
Quarter: 2012Q2

REPORT INFORMATION
  Report Type: 
  Country: None (occurrence: None)
  Receive Date: 20120621
  Receipt Date: 20120618
  Transmission Date: 20120825
  Serious: Yes (Hospitalization)
  Sender: FDA-Public Use
  Company Number: US-GLAXOSMITHKLINE-A0962759A

PATIENT
  Age: 61 Year
  Sex: Female

DRUGS (2)
  1. AVANDIA [Suspect]
     Indication: DIABETES MELLITUS
     Route: 048
     Dates: start: 20050101, end: 20070301
  2. AVANDAMET [Suspect]
     Indication: DIABETES MELLITUS
     Route: 048
     Dates: start: 20070328, end: 20101229

REACTIONS (5)
  - CORONARY ARTERY BYPASS [None]
  - VASCULAR BYPASS DYSFUNCTION [None]
  - NEPHROPATHY [None]
  - AMNESIA [None]
  - MYOCARDIAL INFARCTION [None]
